FAERS Safety Report 13559021 (Version 1)
Quarter: 2017Q2

REPORT INFORMATION
  Report Type: Spontaneous
  Country: US (occurrence: US)
  Receive Date: 20170518
  Receipt Date: 20170518
  Transmission Date: 20170830
  Serious: Yes (Hospitalization, Other)
  Sender: FDA-Public Use
  Company Number: US-TORRENT-00002743

PATIENT
  Age: 27 Year
  Sex: Male
  Weight: 25 kg

DRUGS (16)
  1. VANCOMYCIN [Concomitant]
     Active Substance: VANCOMYCIN
  2. BUSPIRONE [Suspect]
     Active Substance: BUSPIRONE HYDROCHLORIDE
  3. FLUOXETINE [Suspect]
     Active Substance: FLUOXETINE HYDROCHLORIDE
  4. PIPERACILLIN/TAZOBACTAM [Concomitant]
     Active Substance: PIPERACILLIN SODIUM\TAZOBACTAM SODIUM
  5. GABAPENTIN. [Suspect]
     Active Substance: GABAPENTIN
  6. OXYCODONE [Concomitant]
     Active Substance: OXYCODONE
  7. CLONIDINE. [Suspect]
     Active Substance: CLONIDINE
  8. FENTANYL. [Concomitant]
     Active Substance: FENTANYL
  9. ACICLOVIR [Concomitant]
     Active Substance: ACYCLOVIR
  10. NALOXONE [Concomitant]
     Active Substance: NALOXONE
  11. HALOPERIDOL. [Suspect]
     Active Substance: HALOPERIDOL
  12. VALPROIC ACID. [Suspect]
     Active Substance: VALPROIC ACID
  13. OLANZAPINE. [Suspect]
     Active Substance: OLANZAPINE
  14. LORAZEPAM. [Suspect]
     Active Substance: LORAZEPAM
  15. CHLORPROMAZINE. [Suspect]
     Active Substance: CHLORPROMAZINE
  16. RISPERIDONE. [Suspect]
     Active Substance: RISPERIDONE

REACTIONS (4)
  - Drug ineffective [Recovered/Resolved]
  - Sedation [Unknown]
  - Off label use [Unknown]
  - Condition aggravated [Unknown]
